APPROVED DRUG PRODUCT: OXYCODONE AND ACETAMINOPHEN
Active Ingredient: ACETAMINOPHEN; OXYCODONE HYDROCHLORIDE
Strength: 325MG;10MG
Dosage Form/Route: TABLET;ORAL
Application: A040535 | Product #002
Applicant: WATSON LABORATORIES INC
Approved: Sep 5, 2003 | RLD: No | RS: No | Type: DISCN